FAERS Safety Report 8076601-9 (Version None)
Quarter: 2012Q1

REPORT INFORMATION
  Report Type: 
  Country: None (occurrence: None)
  Receive Date: 20120127
  Receipt Date: 20120116
  Transmission Date: 20120608
  Serious: Yes (Other)
  Sender: FDA-Public Use
  Company Number: US-ELI_LILLY_AND_COMPANY-US201112004764

PATIENT
  Sex: Male
  Weight: 74.83 kg

DRUGS (2)
  1. CIALIS [Suspect]
     Dosage: 5 MG, QD
  2. CIALIS [Suspect]
     Indication: ERECTILE DYSFUNCTION
     Dosage: 2.5 MG, QD
     Route: 048
     Dates: start: 20111101, end: 20111205

REACTIONS (5)
  - NAUSEA [None]
  - DRUG INEFFECTIVE [None]
  - HEADACHE [None]
  - ABDOMINAL DISCOMFORT [None]
  - ATRIAL FIBRILLATION [None]
